FAERS Safety Report 10166455 (Version 1)
Quarter: 2014Q2

REPORT INFORMATION
  Report Type: Spontaneous
  Country: US (occurrence: None)
  Receive Date: 20140509
  Receipt Date: 20140509
  Transmission Date: 20141212
  Serious: Yes (Disabling)
  Sender: FDA-Public Use
  Company Number: None

PATIENT
  Age: 67 Year
  Sex: Female
  Weight: 74 kg

DRUGS (9)
  1. ISOVUE 300 [Suspect]
     Indication: COMPUTERISED TOMOGRAM
     Dosage: 1 DOSE ONE TIME INTRAVENOUS
     Route: 042
     Dates: start: 20140225
  2. ATENOLOL [Concomitant]
  3. DIAZEPAM [Concomitant]
  4. HALOPERIDOL [Concomitant]
  5. LISINOPRIL [Concomitant]
  6. NAPROXEN [Concomitant]
  7. CLONIDINE [Concomitant]
  8. METFORMIN [Concomitant]
  9. TRAMADOL [Concomitant]

REACTIONS (3)
  - Nephropathy [None]
  - Contrast media reaction [None]
  - Dialysis [None]
